FAERS Safety Report 7113212-3 (Version None)
Quarter: 2010Q4

REPORT INFORMATION
  Report Type: 
  Country: None (occurrence: None)
  Receive Date: 20101119
  Receipt Date: 20091215
  Transmission Date: 20110411
  Serious: No
  Sender: FDA-Public Use
  Company Number: A0835182A

PATIENT
  Age: 61 Year
  Sex: Female

DRUGS (7)
  1. BUPROPION HYDROCHLORIDE [Suspect]
     Indication: DEPRESSION
     Route: 048
     Dates: start: 20081201
  2. LAMOTRIGINE [Suspect]
     Indication: BIPOLAR DISORDER
     Dosage: 200MG TWICE PER DAY
     Route: 048
     Dates: start: 20081201
  3. ADDERALL 10 [Concomitant]
  4. SIMVASTATIN [Concomitant]
  5. LISINOPRIL [Concomitant]
  6. VALTREX [Concomitant]
  7. RESPERIDOL [Concomitant]

REACTIONS (1)
  - DRUG INEFFECTIVE [None]
